FAERS Safety Report 8343288-7 (Version None)
Quarter: 2012Q2

REPORT INFORMATION
  Report Type: 
  Country: None (occurrence: None)
  Receive Date: 20120508
  Receipt Date: 20120502
  Transmission Date: 20120825
  Serious: Yes (Other)
  Sender: FDA-Public Use
  Company Number: US-BAYER-2012-043479

PATIENT
  Age: 25 Year
  Sex: Female

DRUGS (3)
  1. YAZ [Suspect]
     Dosage: UNK
     Dates: start: 20060801, end: 20111001
  2. DROSPIRENONE AND ETHINYL ESTRADIOL [Suspect]
     Dosage: UNK
     Dates: start: 20060801, end: 20111001
  3. YASMIN [Suspect]
     Dosage: UNK
     Dates: start: 20060801, end: 20111001

REACTIONS (6)
  - CHOLECYSTECTOMY [None]
  - EMOTIONAL DISTRESS [None]
  - ANXIETY [None]
  - ANHEDONIA [None]
  - PAIN [None]
  - INJURY [None]
